FAERS Safety Report 7236724-0 (Version None)
Quarter: 2011Q1

REPORT INFORMATION
  Report Type: 
  Country: None (occurrence: None)
  Receive Date: 20110120
  Receipt Date: 20110118
  Transmission Date: 20110831
  Serious: Yes (Other)
  Sender: FDA-Public Use
  Company Number: US-AMGEN-USASP2010002759

PATIENT

DRUGS (3)
  1. CORTICOSTEROIDS [Concomitant]
     Dosage: UNK
     Dates: start: 20100623, end: 20100623
  2. NPLATE [Suspect]
     Indication: IDIOPATHIC THROMBOCYTOPENIC PURPURA
     Dosage: 10 A?G/KG, QWK
     Route: 058
     Dates: start: 20100714, end: 20101014
  3. IMMUNOGLOBULINS [Concomitant]
     Dosage: UNK
     Dates: start: 20100623, end: 20100623

REACTIONS (4)
  - DRUG INEFFECTIVE [None]
  - PETECHIAE [None]
  - CONTUSION [None]
  - IDIOPATHIC THROMBOCYTOPENIC PURPURA [None]
